FAERS Safety Report 20615157 (Version 1)
Quarter: 2022Q1

REPORT INFORMATION
  Report Type: Spontaneous
  Country: CA (occurrence: CA)
  Receive Date: 20220321
  Receipt Date: 20220321
  Transmission Date: 20220424
  Serious: Yes (Other)
  Sender: FDA-Public Use
  Company Number: CA-AUROBINDO-AUR-APL-2022-008387

PATIENT
  Sex: Female

DRUGS (2)
  1. LEVETIRACETAM [Suspect]
     Active Substance: LEVETIRACETAM
     Indication: Product used for unknown indication
     Dosage: UNK
     Route: 065
  2. KEPPRA [Suspect]
     Active Substance: LEVETIRACETAM
     Indication: Epilepsy
     Dosage: UNK
     Route: 065

REACTIONS (5)
  - Breast cancer [Unknown]
  - Epilepsy [Unknown]
  - Seizure [Unknown]
  - Underdose [Unknown]
  - Off label use [Unknown]
